FAERS Safety Report 10542169 (Version 2)
Quarter: 2014Q4

REPORT INFORMATION
  Report Type: Spontaneous
  Country: US (occurrence: None)
  Receive Date: 20141010
  Receipt Date: 20141205
  Transmission Date: 20150529
  Serious: No
  Sender: FDA-Public Use
  Company Number: 163-POMAL-14064102

PATIENT
  Age: 65 Year
  Sex: Female
  Weight: 81.65 kg

DRUGS (4)
  1. POMALYST [Suspect]
     Active Substance: POMALIDOMIDE
     Indication: PLASMA CELL MYELOMA
     Dosage: 4 ME, 21 IN 21 D, PO
     Route: 048
     Dates: start: 20140616
  2. DEXAMETHASONE  (DEXAMETHASONE) [Concomitant]
     Active Substance: DEXAMETHASONE
  3. ESCITALOPRAM [Concomitant]
     Active Substance: ESCITALOPRAM OXALATE
  4. LEXAPRO (ESCITALOPRAM) [Concomitant]

REACTIONS (7)
  - Feeling jittery [None]
  - Sciatica [None]
  - Laboratory test abnormal [None]
  - Rash macular [None]
  - Erythema [None]
  - Pruritus [None]
  - Constipation [None]

NARRATIVE: CASE EVENT DATE: 2014
